FAERS Safety Report 5575443-3 (Version None)
Quarter: 2007Q4

REPORT INFORMATION
  Report Type: 
  Country: None (occurrence: None)
  Receive Date: 20071227
  Receipt Date: 20071120
  Transmission Date: 20080405
  Serious: Yes (Other)
  Sender: FDA-Public Use
  Company Number: CH-GENENTECH-253387

PATIENT
  Age: 58 Year
  Sex: Female

DRUGS (5)
  1. HERCEPTIN [Suspect]
     Indication: BREAST CANCER METASTATIC
     Dosage: 220 MG, UNK
     Route: 042
     Dates: start: 20030204
  2. VINORELBINE [Suspect]
     Indication: BREAST CANCER METASTATIC
     Dosage: 40 MG, UNK
     Dates: start: 20030204
  3. TAXOTERE [Concomitant]
     Indication: BREAST CANCER METASTATIC
     Dates: start: 20030304
  4. PACLITAXEL [Concomitant]
     Indication: BREAST CANCER METASTATIC
     Dates: start: 20031117
  5. CARBOPLATIN [Concomitant]
     Indication: BREAST CANCER METASTATIC
     Dates: start: 20031117

REACTIONS (2)
  - CARDIOTOXICITY [None]
  - GASTROINTESTINAL TOXICITY [None]
